FAERS Safety Report 5407708-X (Version None)
Quarter: 2007Q3

REPORT INFORMATION
  Report Type: 
  Country: None (occurrence: None)
  Receive Date: 20070807
  Receipt Date: 20070727
  Transmission Date: 20080115
  Serious: Yes (Other)
  Sender: FDA-Public Use
  Company Number: US-PFIZER INC-2007064089

PATIENT
  Sex: Female
  Weight: 108.9 kg

DRUGS (4)
  1. CHANTIX [Suspect]
     Indication: SMOKING CESSATION THERAPY
     Dates: start: 20070726, end: 20070727
  2. LEVAQUIN [Concomitant]
     Indication: BRONCHITIS
  3. FOSAMAX [Concomitant]
  4. LEVOTHYROXINE SODIUM [Concomitant]

REACTIONS (3)
  - BRONCHITIS [None]
  - HEAD DISCOMFORT [None]
  - HEADACHE [None]
